FAERS Safety Report 8799155 (Version 1)
Quarter: 2012Q4

REPORT INFORMATION
  Report Type: Spontaneous
  Country: US (occurrence: None)
  Receive Date: 20120914
  Receipt Date: 20120914
  Transmission Date: 20130627
  Serious: Yes (Hospitalization)
  Sender: FDA-Public Use
  Company Number: AUR-APL-2012-03869

PATIENT
  Sex: Male

DRUGS (1)
  1. RIBAVIRIN [Suspect]

REACTIONS (11)
  - Dyspepsia [None]
  - Arthralgia [None]
  - Oedema peripheral [None]
  - Insomnia [None]
  - Rash [None]
  - Hypovolaemia [None]
  - Hypercalcaemia [None]
  - Hypophagia [None]
  - Fatigue [None]
  - Decreased appetite [None]
  - Sarcoidosis [None]
